FAERS Safety Report 8173359-X (Version None)
Quarter: 2012Q1

REPORT INFORMATION
  Report Type: 
  Country: None (occurrence: None)
  Receive Date: 20120104
  Receipt Date: 20111027
  Transmission Date: 20120608
  Serious: No
  Sender: FDA-Public Use
  Company Number: 2011HGS-002697

PATIENT
  Age: 54 Year
  Sex: Female
  Weight: 76.6579 kg

DRUGS (14)
  1. CELEBREX (CLECOXIB( CLECOXIB) [Concomitant]
  2. WELLBUTRIN (BUPROPION HYDROCHLORIDE) (BUPROPION HYDROCHLORIDE) [Concomitant]
  3. MULTI-VITAMIN (MULTI-VITAMINS VITAFIT) (FOLIC ACID, CALCIUM PANTOTHENA [Concomitant]
  4. NORVASC [Concomitant]
  5. METHOTREXATE [Concomitant]
  6. PLAQUENIL (HYDROCXYCHLOROQUINE SULFATE) (HYDROXYCHLOROQUINE SULFATE) [Concomitant]
  7. PREDNISONE [Concomitant]
  8. ZYRTEC [Concomitant]
  9. FOLIC ACID [Concomitant]
  10. HYDROCODONE (HYDROCODONE) (HYDROCODONE) [Concomitant]
  11. BENLYSTA [Suspect]
     Indication: SYSTEMIC LUPUS ERYTHEMATOSUS
     Dosage: INTRAVENOUS DRIP
     Route: 041
     Dates: start: 20110523
  12. AMILORIDE (AMILORIDE) (AMILORIDE) [Concomitant]
  13. LORAZEPAM [Concomitant]
  14. CITRICAL (CALCIUM CARBONATE) (CALCIUM CARBONATE) [Concomitant]

REACTIONS (3)
  - DRUG INEFFECTIVE [None]
  - PAIN IN EXTREMITY [None]
  - URINARY TRACT INFECTION [None]
